FAERS Safety Report 23827789 (Version 1)
Quarter: 2024Q2

REPORT INFORMATION
  Report Type: Spontaneous
  Country: EG (occurrence: EG)
  Receive Date: 20240507
  Receipt Date: 20240507
  Transmission Date: 20240716
  Serious: Yes (Hospitalization)
  Sender: FDA-Public Use
  Company Number: EG-SANDOZ-SDZ2024EG046008

PATIENT
  Age: 48 Year
  Sex: Female

DRUGS (7)
  1. AMOXICILLIN\CLAVULANATE POTASSIUM [Suspect]
     Active Substance: AMOXICILLIN\CLAVULANATE POTASSIUM
     Indication: Product used for unknown indication
     Dosage: 1 G, BID
     Route: 048
     Dates: start: 20240319
  2. LEVOFLOXACIN [Suspect]
     Active Substance: LEVOFLOXACIN
     Indication: Product used for unknown indication
     Dosage: 500 MG, QD
     Route: 048
     Dates: start: 20240319
  3. DIMETHICONE\MEBEVERINE [Concomitant]
     Active Substance: DIMETHICONE\MEBEVERINE
     Indication: Product used for unknown indication
     Dosage: UNK, TID
     Route: 048
  4. CRYPTONAZ [Concomitant]
     Indication: Product used for unknown indication
     Dosage: 500 MG, BID
     Route: 048
  5. ESMORAP [Concomitant]
     Indication: Product used for unknown indication
     Dosage: 40 MG, BID
     Route: 048
  6. ITOPRIDE [Concomitant]
     Active Substance: ITOPRIDE
     Indication: Product used for unknown indication
     Dosage: 50 MG, BID
     Route: 048
  7. REBAMIPIDE [Concomitant]
     Active Substance: REBAMIPIDE
     Indication: Product used for unknown indication
     Dosage: 100 MG, BID
     Route: 048

REACTIONS (2)
  - Gastritis [Recovering/Resolving]
  - Melaena [Recovered/Resolved]

NARRATIVE: CASE EVENT DATE: 20240327
